FAERS Safety Report 26207181 (Version 1)
Quarter: 2025Q4

REPORT INFORMATION
  Report Type: Other
  Country: EU (occurrence: EU)
  Receive Date: 20251229
  Receipt Date: 20251229
  Transmission Date: 20260119
  Serious: Yes (Death, Congenital Anomaly)
  Sender: ZYDUS PHARM
  Company Number: None

PATIENT

DRUGS (1)
  1. BISOPROLOL [Suspect]
     Active Substance: BISOPROLOL
     Indication: Aortic dilatation
     Dosage: 2.5 MILLIGRAM, QD
     Route: 064
     Dates: start: 20250211, end: 20250730

REACTIONS (6)
  - Brain malformation [Not Recovered/Not Resolved]
  - Cleft palate [Not Recovered/Not Resolved]
  - Clinodactyly [Not Recovered/Not Resolved]
  - Abortion induced [Fatal]
  - Foetal exposure during pregnancy [Recovered/Resolved]
  - Foetal exposure during pregnancy [Recovered/Resolved]

NARRATIVE: CASE EVENT DATE: 20250730
